FAERS Safety Report 23423864 (Version 2)
Quarter: 2024Q1

REPORT INFORMATION
  Report Type: Spontaneous
  Country: US (occurrence: US)
  Receive Date: 20240119
  Receipt Date: 20240130
  Transmission Date: 20240409
  Serious: No
  Sender: FDA-Public Use
  Company Number: US-SANOFI-01909508

PATIENT
  Age: 46 Year
  Sex: Male

DRUGS (2)
  1. DUPIXENT [Suspect]
     Active Substance: DUPILUMAB
     Indication: Dermatitis atopic
     Dosage: 300 MG, QOW
     Route: 065
     Dates: start: 202309
  2. DUPIXENT [Suspect]
     Active Substance: DUPILUMAB
     Indication: Psoriasis

REACTIONS (4)
  - Pain [Unknown]
  - Dry skin [Unknown]
  - Product use in unapproved indication [Unknown]
  - Product dose omission issue [Unknown]

NARRATIVE: CASE EVENT DATE: 20230901
